FAERS Safety Report 13299608 (Version 4)
Quarter: 2018Q4

REPORT INFORMATION
  Report Type: Spontaneous
  Country: US (occurrence: US)
  Receive Date: 20170306
  Receipt Date: 20181213
  Transmission Date: 20190204
  Serious: Yes (Other)
  Sender: FDA-Public Use
  Company Number: US-ASTRAZENECA-2017SE22724

PATIENT
  Age: 46 Year
  Sex: Female
  Weight: 111.1 kg

DRUGS (38)
  1. LO LOESTRIN FE [Concomitant]
     Active Substance: ETHINYL ESTRADIOL\NORETHINDRONE ACETATE
     Dosage: 1 MG-10(24) UNKNOWN
     Dates: start: 20120520
  2. METHYLPREDNISOLONE. [Concomitant]
     Active Substance: METHYLPREDNISOLONE
     Dosage: 4.0MG UNKNOWN
     Dates: start: 20121220
  3. DOXYCYCLINE. [Concomitant]
     Active Substance: DOXYCYCLINE
  4. ALLEGRA [Concomitant]
     Active Substance: FEXOFENADINE HYDROCHLORIDE
  5. RAMIPRIL. [Concomitant]
     Active Substance: RAMIPRIL
  6. CYCLOBENZAPRINE HYDROCHLORIDE. [Concomitant]
     Active Substance: CYCLOBENZAPRINE HYDROCHLORIDE
     Dosage: 10.0MG UNKNOWN
     Dates: start: 20140616
  7. PROMETHAZINE [Concomitant]
     Active Substance: PROMETHAZINE\PROMETHAZINE HYDROCHLORIDE
  8. BENZONATATE. [Concomitant]
     Active Substance: BENZONATATE
  9. OCELLA [Concomitant]
     Active Substance: DROSPIRENONE\ETHINYL ESTRADIOL
  10. AVELOX [Concomitant]
     Active Substance: MOXIFLOXACIN HYDROCHLORIDE
  11. NIZATIDINE. [Concomitant]
     Active Substance: NIZATIDINE
  12. FINACEA [Concomitant]
     Active Substance: AZELAIC ACID
     Dosage: 15.0% UNKNOWN
     Dates: start: 20121025
  13. AMOXICILLIN. [Concomitant]
     Active Substance: AMOXICILLIN
     Dosage: 500.0MG UNKNOWN
     Dates: start: 20120607
  14. PREDNISONE. [Concomitant]
     Active Substance: PREDNISONE
     Dosage: 10.0MG UNKNOWN
     Dates: start: 20130205
  15. AZITHROMYCIN ANHYDROUS. [Concomitant]
     Active Substance: AZITHROMYCIN ANHYDROUS
  16. FLUTICASONE. [Concomitant]
     Active Substance: FLUTICASONE
  17. CEPHALEXIN. [Concomitant]
     Active Substance: CEPHALEXIN
     Dosage: 500.0MG UNKNOWN
     Dates: start: 20130409
  18. PROCTOFOAM HC [Concomitant]
     Active Substance: HYDROCORTISONE ACETATE\PRAMOXINE HYDROCHLORIDE
     Dosage: 1.0% UNKNOWN
     Dates: start: 20130822
  19. NIZATIDINE. [Concomitant]
     Active Substance: NIZATIDINE
  20. SINGULAIR [Concomitant]
     Active Substance: MONTELUKAST SODIUM
  21. GUAIFENEX [Concomitant]
     Active Substance: GUAIFENESIN\PHENYLEPHRINE\PHENYLPROPANOLAMINE
  22. CIPROFLOXACIN. [Concomitant]
     Active Substance: CIPROFLOXACIN
  23. NEXIUM [Suspect]
     Active Substance: ESOMEPRAZOLE MAGNESIUM
     Route: 048
     Dates: start: 2007
  24. CARAC [Concomitant]
     Active Substance: FLUOROURACIL
     Dosage: 0.5% UNKNOWN
     Dates: start: 20120719
  25. LEVOFLOXACIN. [Concomitant]
     Active Substance: LEVOFLOXACIN
     Dosage: 500.0MG UNKNOWN
     Dates: start: 20131220
  26. MICARDIS/TELMISARTAN [Concomitant]
     Dates: start: 20120504
  27. ADVAIR HFA [Concomitant]
     Active Substance: FLUTICASONE PROPIONATE\SALMETEROL XINAFOATE
  28. TOBRAMYCIN. [Concomitant]
     Active Substance: TOBRAMYCIN
  29. PROMETHAZINE-CODEINE [Concomitant]
     Active Substance: CODEINE PHOSPHATE\PROMETHAZINE
     Dosage: 6.25-10/5 UNKNOWN
     Dates: start: 20141015
  30. TOBRAMYCIN-DEXAMETHASONE [Concomitant]
     Active Substance: DEXAMETHASONE\TOBRAMYCIN
     Dosage: 0.3%-1% UNKNOWN
     Dates: start: 20121211
  31. ALPRAZOLAM. [Concomitant]
     Active Substance: ALPRAZOLAM
  32. PATANOL [Concomitant]
     Active Substance: OLOPATADINE HYDROCHLORIDE
     Dosage: 1.0% UNKNOWN
     Dates: start: 20140429
  33. TUMS [Concomitant]
     Active Substance: CALCIUM CARBONATE
  34. NEXIUM [Suspect]
     Active Substance: ESOMEPRAZOLE MAGNESIUM
     Dosage: 40.0MG UNKNOWN
     Route: 048
     Dates: start: 20120601
  35. HYDROCODONE-ACETAMINOPHEN [Concomitant]
     Active Substance: ACETAMINOPHEN\HYDROCODONE
     Dosage: 7.5-325 MG, UNKNOWN
     Dates: start: 20130409
  36. IBUPROFEN. [Concomitant]
     Active Substance: IBUPROFEN
     Dosage: 800.0MG UNKNOWN
     Dates: start: 20130427
  37. PROAIR HFA [Concomitant]
     Active Substance: ALBUTEROL SULFATE
     Dates: start: 20120607
  38. ALBUTEROL. [Concomitant]
     Active Substance: ALBUTEROL

REACTIONS (3)
  - Renal failure [Unknown]
  - Nephropathy [Not Recovered/Not Resolved]
  - Chronic kidney disease [Unknown]

NARRATIVE: CASE EVENT DATE: 2013
